FAERS Safety Report 11976270 (Version 1)
Quarter: 2016Q1

REPORT INFORMATION
  Report Type: Spontaneous
  Country: US (occurrence: None)
  Receive Date: 20160128
  Receipt Date: 20160128
  Transmission Date: 20160526
  Serious: No
  Sender: FDA-Public Use
  Company Number: None

PATIENT
  Age: 67 Year
  Sex: Female
  Weight: 61.24 kg

DRUGS (4)
  1. LACTOBACILLIS ACIDOPHILUS [Concomitant]
  2. AMLODIPINE BESYLATE. [Concomitant]
     Active Substance: AMLODIPINE BESYLATE
  3. CRANBERRY PLUS C [Concomitant]
  4. WELCHOL [Suspect]
     Active Substance: COLESEVELAM HYDROCHLORIDE
     Indication: BLOOD CHOLESTEROL INCREASED
     Dosage: 1 TABLET  1 TABLET EVERY OTH    TAKEN BY MOUTH
     Route: 048
     Dates: start: 20150121, end: 20150123

REACTIONS (5)
  - Dysstasia [None]
  - Abdominal pain lower [None]
  - Chills [None]
  - Syncope [None]
  - Drug dose omission [None]

NARRATIVE: CASE EVENT DATE: 20150124
